FAERS Safety Report 11976772 (Version 3)
Quarter: 2016Q1

REPORT INFORMATION
  Report Type: Spontaneous
  Country: US (occurrence: US)
  Receive Date: 20160129
  Receipt Date: 20160314
  Transmission Date: 20160526
  Serious: Yes (Other)
  Sender: FDA-Public Use
  Company Number: CHPA2016US000993

PATIENT
  Age: 64 Year
  Sex: Female

DRUGS (2)
  1. MINERAL ICE PAIN RELIEVING [Suspect]
     Active Substance: MENTHOL
     Indication: SPINAL COLUMN STENOSIS
  2. MINERAL ICE PAIN RELIEVING [Suspect]
     Active Substance: MENTHOL
     Indication: ARTHRALGIA
     Dosage: UNK, BID
     Route: 061

REACTIONS (5)
  - Product use issue [Unknown]
  - Drug ineffective [Unknown]
  - Spinal column stenosis [Unknown]
  - Therapeutic response unexpected [Unknown]
  - Drug ineffective for unapproved indication [Unknown]
